FAERS Safety Report 5882574-7 (Version None)
Quarter: 2008Q3

REPORT INFORMATION
  Report Type: 
  Country: None (occurrence: None)
  Receive Date: 20080913
  Receipt Date: 20080811
  Transmission Date: 20090109
  Serious: No
  Sender: FDA-Public Use
  Company Number: US-ABBOTT-08P-163-0469717-00

PATIENT
  Sex: Male
  Weight: 64.014 kg

DRUGS (1)
  1. HUMIRA [Suspect]
     Indication: RHEUMATOID ARTHRITIS
     Route: 058
     Dates: start: 20080729, end: 20080801

REACTIONS (5)
  - CONTUSION [None]
  - DIZZINESS [None]
  - URTICARIA [None]
  - VISION BLURRED [None]
  - VISUAL IMPAIRMENT [None]
